FAERS Safety Report 8575890-1 (Version None)
Quarter: 2012Q3

REPORT INFORMATION
  Report Type: 
  Country: None (occurrence: None)
  Receive Date: 20120807
  Receipt Date: 20120730
  Transmission Date: 20120928
  Serious: Yes (Other)
  Sender: FDA-Public Use
  Company Number: US-BAYER-2012-077634

PATIENT
  Age: 54 Year
  Sex: Female

DRUGS (3)
  1. ASPIRIN [Suspect]
     Route: 048
  2. TRAMADOL HCL [Concomitant]
  3. ALEVE (CAPLET) [Suspect]
     Route: 048

REACTIONS (2)
  - GASTRIC ULCER [None]
  - GASTRITIS EROSIVE [None]
